FAERS Safety Report 7811165-3 (Version None)
Quarter: 2011Q4

REPORT INFORMATION
  Report Type: 
  Country: None (occurrence: None)
  Receive Date: 20111011
  Receipt Date: 20110928
  Transmission Date: 20120403
  Serious: Yes (Hospitalization)
  Sender: FDA-Public Use
  Company Number: USA/USA/11/0021453

PATIENT
  Age: 60 Year
  Sex: Female
  Weight: 58.5 kg

DRUGS (20)
  1. NORCO (HYDROCODONE BITARTRATE + PARACETAMOL) (PROCET /01554201/) [Concomitant]
  2. AUGMENTIN '875' [Suspect]
     Indication: URINARY TRACT INFECTION
     Dosage: 2 IN 1 D, ORAL
     Route: 048
     Dates: start: 20110804, end: 20110807
  3. BLINDED THERAPY (BLINDED) [Suspect]
     Indication: OSTEOARTHRITIS
     Dosage: ORAL
     Route: 048
     Dates: start: 20110715, end: 20110802
  4. COLECALCIFEROL (COLECALCIFEROL) [Concomitant]
  5. UNASYN [Suspect]
     Indication: URINARY TRACT INFECTION
     Dosage: 3 GM, 1 IN 6 HR, INTRAVENOUS
     Route: 042
     Dates: start: 20110803, end: 20110804
  6. LEVOXYL [Concomitant]
  7. ESTRADIOL [Concomitant]
  8. MILK OF MAGNESIA TAB [Concomitant]
  9. ETODOLAC [Concomitant]
  10. COLACE (DOCUSATE SODIUM) [Concomitant]
  11. ASPIRIN [Concomitant]
  12. VYTORIN (EZETIMIBE+SIMVASTATIN) (INEGY) [Concomitant]
  13. LISINOPRIL [Concomitant]
  14. OMEGA 3 PLUS D3 FISH OIL (FISH OIL) [Concomitant]
  15. HEXAVITAMIN (HEXAVITAMIN /01719701/) [Concomitant]
  16. LUTEIN (XANTOFYL) [Concomitant]
  17. CALCIUM W/MAGNESIUM (CALCIUM W/MAGNESIUM) [Concomitant]
  18. LIDODERM [Concomitant]
  19. IBUPROFEN [Concomitant]
  20. MACROBID [Concomitant]

REACTIONS (12)
  - URINARY RETENTION [None]
  - DRUG INTOLERANCE [None]
  - DYSURIA [None]
  - POST PROCEDURAL COMPLICATION [None]
  - ABDOMINAL PAIN LOWER [None]
  - GASTRITIS [None]
  - BACK PAIN [None]
  - CLOSTRIDIUM DIFFICILE COLITIS [None]
  - URINARY TRACT INFECTION [None]
  - NAUSEA [None]
  - CONSTIPATION [None]
  - PAIN [None]
